FAERS Safety Report 9166093 (Version 1)
Quarter: 2013Q1

REPORT INFORMATION
  Report Type: Spontaneous
  Country: PL (occurrence: None)
  Receive Date: 20130301
  Receipt Date: 20130301
  Transmission Date: 20140127
  Serious: Yes (Other)
  Sender: FDA-Public Use
  Company Number: AUR-APL-2013-01737

PATIENT
  Age: 54 Year
  Sex: Male

DRUGS (6)
  1. PERINDOPRIL (PERINDOPRIL) [Suspect]
     Indication: PRODUCT USED FOR UNKNOWN INDICATION
     Dosage: (2.5 MG, 1 D), UNKNOWN
  2. ATENOLOL (ATENOLOL) [Suspect]
     Indication: PRODUCT USED FOR UNKNOWN INDICATION
  3. ACETYLSALICYLIC ACID (ACETYLSALICYLIC ACID) [Suspect]
     Indication: PRODUCT USED FOR UNKNOWN INDICATION
  4. PROPAFENONE (PROPAFENONE) [Suspect]
     Indication: PRODUCT USED FOR UNKNOWN INDICATION
  5. AMIODARONE (AMIODARONE) [Suspect]
     Indication: PRODUCT USED FOR UNKNOWN INDICATION
     Dosage: (50 MG 1 IN 1 D)
     Route: 048
  6. METOPROLOL SUCCINATE (METOPROLOL SUCCINATE) [Suspect]
     Indication: PRODUCT USED FOR UNKNOWN INDICATION
     Dosage: UP TO THE TOTAL DOSE OF 14 G, ORAL
     Route: 048

REACTIONS (4)
  - Atrial fibrillation [None]
  - Drug ineffective [None]
  - Mitral valve incompetence [None]
  - Tricuspid valve incompetence [None]
